FAERS Safety Report 17369248 (Version 2)
Quarter: 2020Q1

REPORT INFORMATION
  Report Type: Report from Study
  Country: US (occurrence: US)
  Receive Date: 20200204
  Receipt Date: 20200214
  Transmission Date: 20200409
  Serious: Yes (Death)
  Sender: FDA-Public Use
  Company Number: US-EXELIXIS-CABO-20027095

PATIENT
  Age: 78 Year
  Sex: Male

DRUGS (16)
  1. CABOMETYX [Suspect]
     Active Substance: CABOZANTINIB S-MALATE
     Indication: RENAL CANCER
     Dosage: UNK
     Dates: start: 201903
  2. XGEVA [Concomitant]
     Active Substance: DENOSUMAB
  3. CABOMETYX [Suspect]
     Active Substance: CABOZANTINIB S-MALATE
     Dosage: 40 MG
     Dates: end: 201909
  4. LOSARTAN. [Concomitant]
     Active Substance: LOSARTAN
  5. COLCHICINE. [Concomitant]
     Active Substance: COLCHICINE
  6. ONDANSETRON [Concomitant]
     Active Substance: ONDANSETRON
  7. CALCITONIN [Concomitant]
     Active Substance: CALCITONIN
  8. CABOMETYX [Suspect]
     Active Substance: CABOZANTINIB S-MALATE
     Dosage: 40 MG
     Dates: end: 201908
  9. AMLODIPIN [Concomitant]
     Active Substance: AMLODIPINE BESYLATE
  10. HYDROCODONE [Concomitant]
     Active Substance: HYDROCODONE
  11. COMPAZINE [Concomitant]
     Active Substance: PROCHLORPERAZINE MALEATE
  12. CABOMETYX [Suspect]
     Active Substance: CABOZANTINIB S-MALATE
     Dosage: 40 MG
     Dates: end: 201911
  13. MULTIVITAMINS [Concomitant]
     Active Substance: VITAMINS
  14. ZOMETA [Concomitant]
     Active Substance: ZOLEDRONIC ACID
  15. CABOMETYX [Suspect]
     Active Substance: CABOZANTINIB S-MALATE
     Dosage: 40 MG
     Dates: end: 201907
  16. ALLOPURINOL. [Concomitant]
     Active Substance: ALLOPURINOL

REACTIONS (3)
  - Malignant neoplasm progression [Fatal]
  - Skin ulcer [Unknown]
  - Treatment noncompliance [Unknown]

NARRATIVE: CASE EVENT DATE: 201911
